FAERS Safety Report 14347430 (Version 1)
Quarter: 2017Q4

REPORT INFORMATION
  Report Type: Spontaneous
  Country: US (occurrence: US)
  Receive Date: 20171230
  Receipt Date: 20171230
  Transmission Date: 20180321
  Serious: Yes (Other)
  Sender: FDA-Public Use
  Company Number: None

PATIENT
  Age: 33 Year
  Sex: Male
  Weight: 80.74 kg

DRUGS (5)
  1. WELLBUTRIN [Concomitant]
     Active Substance: BUPROPION HYDROCHLORIDE
  2. BUPROPION HCL ER (XL) 300MG TB24 [Suspect]
     Active Substance: BUPROPION HYDROCHLORIDE
     Indication: ATTENTION DEFICIT/HYPERACTIVITY DISORDER
     Dosage: FREQUENCY - ONCE UPON WAKING
     Route: 048
     Dates: start: 20170127, end: 20170207
  3. BUPROPION HCL ER (XL) 300MG TB24 [Suspect]
     Active Substance: BUPROPION HYDROCHLORIDE
     Indication: DEPRESSION
     Dosage: FREQUENCY - ONCE UPON WAKING
     Route: 048
     Dates: start: 20170127, end: 20170207
  4. BUPROPION XL 150MG TAB 30 [Suspect]
     Active Substance: BUPROPION HYDROCHLORIDE
  5. ADDERALL [Concomitant]
     Active Substance: AMPHETAMINE ASPARTATE\AMPHETAMINE SULFATE\DEXTROAMPHETAMINE SACCHARATE\DEXTROAMPHETAMINE SULFATE

REACTIONS (8)
  - Swelling face [None]
  - Flushing [None]
  - Depression [None]
  - Hypersensitivity [None]
  - Condition aggravated [None]
  - Anxiety [None]
  - Attention deficit/hyperactivity disorder [None]
  - Insomnia [None]

NARRATIVE: CASE EVENT DATE: 20170702
